FAERS Safety Report 12934223 (Version 2)
Quarter: 2016Q4

REPORT INFORMATION
  Report Type: Spontaneous
  Country: US (occurrence: US)
  Receive Date: 20161111
  Receipt Date: 20161220
  Transmission Date: 20170207
  Serious: Yes (Hospitalization)
  Sender: FDA-Public Use
  Company Number: US-009507513-1611USA002293

PATIENT
  Sex: Male

DRUGS (1)
  1. PROSCAR [Suspect]
     Active Substance: FINASTERIDE
     Indication: PROSTATOMEGALY
     Dosage: UNK, UNKNOWN
     Route: 048
     Dates: start: 201207

REACTIONS (3)
  - Penile size reduced [Not Recovered/Not Resolved]
  - Emotional disorder [Not Recovered/Not Resolved]
  - Catheterisation cardiac [Unknown]
